FAERS Safety Report 7471752-1 (Version None)
Quarter: 2011Q2

REPORT INFORMATION
  Report Type: 
  Country: None (occurrence: None)
  Receive Date: 20110511
  Receipt Date: 20100323
  Transmission Date: 20111010
  Serious: No
  Sender: FDA-Public Use
  Company Number: A0852201A

PATIENT
  Sex: Female

DRUGS (2)
  1. TYKERB [Suspect]
     Indication: BREAST CANCER
     Dosage: 1000MG PER DAY
     Route: 065
     Dates: start: 20100301
  2. XELODA [Suspect]
     Indication: BREAST CANCER
     Dosage: 1500MG TWICE PER DAY
     Dates: start: 20100301

REACTIONS (7)
  - HYPOAESTHESIA [None]
  - NAUSEA [None]
  - ASTHENIA [None]
  - CONSTIPATION [None]
  - DRY SKIN [None]
  - FATIGUE [None]
  - PARAESTHESIA [None]
